FAERS Safety Report 4494429-3 (Version None)
Quarter: 2004Q4

REPORT INFORMATION
  Report Type: 
  Country: None (occurrence: None)
  Receive Date: 20041104
  Receipt Date: 20041104
  Transmission Date: 20050328
  Serious: Yes (Hospitalization)
  Sender: FDA-Public Use
  Company Number: None

PATIENT
  Sex: Male
  Weight: 90.7194 kg

DRUGS (1)
  1. VIOXX [Suspect]
     Indication: BACK PAIN
     Dosage: 1-25 MG AT BEDTIME
     Dates: start: 20010924, end: 20040226

REACTIONS (2)
  - FEELING ABNORMAL [None]
  - NEPHRITIS INTERSTITIAL [None]
